FAERS Safety Report 20580868 (Version 1)
Quarter: 2022Q1

REPORT INFORMATION
  Report Type: Spontaneous
  Country: US (occurrence: US)
  Receive Date: 20220311
  Receipt Date: 20220311
  Transmission Date: 20220423
  Serious: No
  Sender: FDA-Public Use
  Company Number: US-ELI_LILLY_AND_COMPANY-US202203005034

PATIENT
  Sex: Female

DRUGS (1)
  1. ERBITUX [Suspect]
     Active Substance: CETUXIMAB
     Indication: Colon cancer metastatic
     Dosage: UNK UNK, UNKNOWN
     Route: 042

REACTIONS (3)
  - Joint swelling [Not Recovered/Not Resolved]
  - Nail bed tenderness [Not Recovered/Not Resolved]
  - Nail discolouration [Not Recovered/Not Resolved]
